FAERS Safety Report 9621613 (Version 2)
Quarter: 2013Q4

REPORT INFORMATION
  Report Type: Spontaneous
  Country: US (occurrence: US)
  Receive Date: 20131015
  Receipt Date: 20131030
  Transmission Date: 20140711
  Serious: No
  Sender: FDA-Public Use
  Company Number: US-PFIZER INC-2013294490

PATIENT
  Sex: Male

DRUGS (3)
  1. CELEBREX [Suspect]
     Indication: ARTHRALGIA
     Dosage: UNK, AS NEEDED
  2. LIPITOR [Suspect]
     Dosage: 80 MG
  3. BABY ASPIRIN [Suspect]
     Dosage: UNK

REACTIONS (3)
  - Pruritus [Unknown]
  - Palmar erythema [Unknown]
  - Erythema [Unknown]
